FAERS Safety Report 5703090-9 (Version None)
Quarter: 2008Q2

REPORT INFORMATION
  Report Type: 
  Country: None (occurrence: None)
  Receive Date: 20080411
  Receipt Date: 20080406
  Transmission Date: 20081010
  Serious: Yes (Hospitalization)
  Sender: FDA-Public Use
  Company Number: GB-ROCHE-557276

PATIENT
  Sex: Female
  Weight: 114.3 kg

DRUGS (1)
  1. ORLISTAT [Suspect]
     Indication: OBESITY
     Route: 048
     Dates: start: 20080215

REACTIONS (3)
  - FALL [None]
  - HEAD INJURY [None]
  - LABYRINTHITIS [None]
